FAERS Safety Report 6441614-7 (Version None)
Quarter: 2009Q4

REPORT INFORMATION
  Report Type: 
  Country: None (occurrence: None)
  Receive Date: 20091116
  Receipt Date: 20091102
  Transmission Date: 20100525
  Serious: Yes (Hospitalization)
  Sender: FDA-Public Use
  Company Number: IT-AMGEN-US372746

PATIENT
  Sex: Male

DRUGS (2)
  1. ENBREL [Suspect]
     Indication: RHEUMATOID ARTHRITIS
     Dosage: 50 MG WEEKLY
     Route: 058
     Dates: start: 20070101, end: 20090801
  2. ARAVA [Concomitant]
     Dosage: 20 MG
     Route: 048

REACTIONS (4)
  - GASTRIC CANCER [None]
  - HYPERCHLORAEMIA [None]
  - METASTASES TO LIVER [None]
  - RECTAL CANCER [None]
